FAERS Safety Report 19733702 (Version 2)
Quarter: 2021Q3

REPORT INFORMATION
  Report Type: Spontaneous
  Country: US (occurrence: US)
  Receive Date: 20210823
  Receipt Date: 20210903
  Transmission Date: 20211014
  Serious: Yes (Other)
  Sender: FDA-Public Use
  Company Number: US-NOVOPROD-840047

PATIENT
  Age: 65 Year
  Sex: Female

DRUGS (2)
  1. NOVOLOG [Suspect]
     Active Substance: INSULIN ASPART
     Dosage: 333 IU, QD
     Route: 058
  2. NOVOLOG [Suspect]
     Active Substance: INSULIN ASPART
     Indication: PRODUCT USED FOR UNKNOWN INDICATION
     Dosage: DOSE VARIES
     Route: 058
     Dates: start: 2010

REACTIONS (3)
  - Blood glucose increased [Not Recovered/Not Resolved]
  - Cataract [Unknown]
  - Insulin resistance [Unknown]

NARRATIVE: CASE EVENT DATE: 20210811
